FAERS Safety Report 7821260-0 (Version None)
Quarter: 2011Q4

REPORT INFORMATION
  Report Type: 
  Country: None (occurrence: None)
  Receive Date: 20111018
  Receipt Date: 20110426
  Transmission Date: 20120403
  Serious: No
  Sender: FDA-Public Use
  Company Number: US-ASTRAZENECA-2011SE24212

PATIENT
  Age: 68 Year
  Sex: Male

DRUGS (7)
  1. CARVEDILOL [Concomitant]
     Indication: HYPERTENSION
  2. CLONIDINE [Concomitant]
     Indication: HYPERTENSION
  3. TERAZOSIN HCL [Concomitant]
     Indication: HYPERTENSION
  4. METFORMIN HCL [Concomitant]
     Indication: DIABETES MELLITUS
  5. SYMBICORT [Suspect]
     Indication: WHEEZING
     Dosage: 2 PUFFS TWICE DAILY
     Route: 055
     Dates: start: 20110201
  6. ATACAND [Concomitant]
     Indication: HYPERTENSION
     Route: 048
  7. PROBENECID [Concomitant]
     Indication: GOUT

REACTIONS (1)
  - GOUT [None]
